FAERS Safety Report 24209026 (Version 5)
Quarter: 2025Q3

REPORT INFORMATION
  Report Type: Spontaneous
  Country: US (occurrence: US)
  Receive Date: 20240814
  Receipt Date: 20250827
  Transmission Date: 20251021
  Serious: No
  Sender: SANOFI AVENTIS
  Company Number: US-SA-SAC20240809000389

PATIENT
  Age: 68 Year
  Sex: Female

DRUGS (4)
  1. DUPIXENT [Suspect]
     Active Substance: DUPILUMAB
     Indication: Dermatitis atopic
     Dosage: 300 MG, QOW
     Route: 058
     Dates: start: 202308
  2. DUPIXENT [Suspect]
     Active Substance: DUPILUMAB
     Dosage: 300 MG, QOW
     Route: 058
     Dates: start: 202406
  3. ADBRY [Concomitant]
     Active Substance: TRALOKINUMAB-LDRM
  4. ADBRY [Concomitant]
     Active Substance: TRALOKINUMAB-LDRM
     Dosage: 1 DF, Q15D

REACTIONS (12)
  - Dental caries [Unknown]
  - Alveolar osteitis [Unknown]
  - Anxiety [Unknown]
  - Tooth loss [Unknown]
  - Bone loss [Unknown]
  - Urinary tract infection [Unknown]
  - Nasopharyngitis [Unknown]
  - Insomnia [Unknown]
  - Dermatitis atopic [Unknown]
  - Acne [Unknown]
  - Pruritus [Unknown]
  - Erythema [Unknown]
